FAERS Safety Report 18600244 (Version 1)
Quarter: 2020Q4

REPORT INFORMATION
  Report Type: Spontaneous
  Country: US (occurrence: US)
  Receive Date: 20201210
  Receipt Date: 20201210
  Transmission Date: 20210114
  Serious: Yes (Other)
  Sender: FDA-Public Use
  Company Number: None

PATIENT
  Sex: Female

DRUGS (5)
  1. DOTTI 0.0375MG/24HR [Concomitant]
  2. DOTTI 0.075MG/24HR [Concomitant]
  3. DOTTI 0.025MG/24HR [Concomitant]
  4. DOTTI [Suspect]
     Active Substance: ESTRADIOL
  5. DOTTI [Suspect]
     Active Substance: ESTRADIOL

REACTIONS (4)
  - Product adhesion issue [None]
  - Hot flush [None]
  - Menopausal symptoms [None]
  - Rash [None]
